FAERS Safety Report 6969492-8 (Version None)
Quarter: 2010Q3

REPORT INFORMATION
  Report Type: 
  Country: None (occurrence: None)
  Receive Date: 20100907
  Receipt Date: 20100907
  Transmission Date: 20110219
  Serious: Yes (Life-Threatening, Hospitalization)
  Sender: FDA-Public Use
  Company Number: None

PATIENT
  Age: 67 Year
  Sex: Female

DRUGS (1)
  1. PROZAC [Suspect]

REACTIONS (4)
  - DRUG DISPENSING ERROR [None]
  - DYSKINESIA [None]
  - MEDICATION ERROR [None]
  - WRONG DRUG ADMINISTERED [None]
